FAERS Safety Report 10262115 (Version 1)
Quarter: 2014Q2

REPORT INFORMATION
  Report Type: Spontaneous
  Country: FR (occurrence: FR)
  Receive Date: 20140626
  Receipt Date: 20140626
  Transmission Date: 20141212
  Serious: Yes (Other)
  Sender: FDA-Public Use
  Company Number: FR-ASTRAZENECA-2014SE45616

PATIENT
  Age: 26859 Day
  Sex: Male
  Weight: 86 kg

DRUGS (13)
  1. INEXIUM [Suspect]
     Route: 048
     Dates: end: 20120921
  2. METHOTREXATE [Suspect]
     Indication: B-CELL LYMPHOMA
     Dosage: 1500 MG/M2
     Route: 041
     Dates: start: 20120922, end: 20120922
  3. ZELITREX [Suspect]
     Route: 048
  4. ORACILLINE [Suspect]
     Dosage: 1 MIU BIDAILY
     Route: 048
  5. PREDNISONE [Concomitant]
  6. CYCLOPHOSPHAMIDE [Concomitant]
  7. DOXORUBICINE [Concomitant]
  8. VINCRISTINE [Concomitant]
  9. MESNA [Concomitant]
  10. ZOPHREN [Concomitant]
  11. XANAX [Concomitant]
  12. ACUPAN [Concomitant]
  13. IMOVANE [Concomitant]

REACTIONS (1)
  - Renal failure acute [Recovered/Resolved]
